FAERS Safety Report 21689202 (Version 1)
Quarter: 2022Q4

REPORT INFORMATION
  Report Type: Spontaneous
  Country: US (occurrence: None)
  Receive Date: 20221205
  Receipt Date: 20221205
  Transmission Date: 20230112
  Serious: Yes (Death)
  Sender: FDA-Public Use
  Company Number: None

PATIENT
  Age: 70 Year
  Sex: Male
  Weight: 67.04 kg

DRUGS (12)
  1. CAPECITABINE [Suspect]
     Active Substance: CAPECITABINE
     Indication: Rectal cancer
     Dosage: FREQUENCY : TWICE A DAY;?
     Route: 048
  2. FOLIC ACID [Concomitant]
  3. GAVILYTEC-C [Concomitant]
  4. NORCO [Concomitant]
  5. IRON [Concomitant]
  6. LEVOTHYROXINE [Concomitant]
  7. NYSTATIN [Concomitant]
  8. ONDANSETRON [Concomitant]
  9. PANTOPRAZOLE [Concomitant]
  10. STOOL SOFTNER [Concomitant]
  11. TRAZODONE [Concomitant]
  12. XARELTO [Concomitant]
     Active Substance: RIVAROXABAN

REACTIONS (1)
  - Death [None]
